FAERS Safety Report 7103100 (Version 2)
Quarter: 2014Q4

REPORT INFORMATION
  Report Type: Spontaneous
  Country: AT (occurrence: AT)
  Receive Date: 20090902
  Receipt Date: 20141014
  Transmission Date: 20150529
  Serious: Yes (Death)
  Sender: FDA-Public Use
  Company Number: AT-ROCHE-651958

PATIENT
  Sex: Male
  Weight: 65 kg

DRUGS (2)
  1. ROACCUTANE [Suspect]
     Active Substance: ISOTRETINOIN
     Indication: ACNE
     Route: 065
     Dates: start: 2002, end: 2003
  2. CISCUTAN [Suspect]
     Active Substance: ISOTRETINOIN
     Indication: ACNE
     Dosage: DRUG REPORTED AS CICCUTAN
     Route: 065
     Dates: start: 2006, end: 2007

REACTIONS (2)
  - Completed suicide [Fatal]
  - Overdose [Unknown]

NARRATIVE: CASE EVENT DATE: 200906
